FAERS Safety Report 6133584-6 (Version None)
Quarter: 2009Q1

REPORT INFORMATION
  Report Type: 
  Country: None (occurrence: None)
  Receive Date: 20090324
  Receipt Date: 20090311
  Transmission Date: 20090719
  Serious: Yes (Other)
  Sender: FDA-Public Use
  Company Number: 2009AL001461

PATIENT
  Sex: Female

DRUGS (2)
  1. FLUOXETINE [Suspect]
  2. ALCOHOL [Concomitant]

REACTIONS (2)
  - ALCOHOL USE [None]
  - SOMNOLENCE [None]
